FAERS Safety Report 18944735 (Version 2)
Quarter: 2021Q1

REPORT INFORMATION
  Report Type: Spontaneous
  Country: US (occurrence: US)
  Receive Date: 20210226
  Receipt Date: 20210303
  Transmission Date: 20210420
  Serious: Yes (Other)
  Sender: FDA-Public Use
  Company Number: US-PFIZER INC-2021180382

PATIENT
  Age: 28 Year
  Sex: Female

DRUGS (6)
  1. CELECOXIB. [Suspect]
     Active Substance: CELECOXIB
     Indication: IMPAIRED SELF-CARE
     Dosage: UNK
  2. CELECOXIB. [Suspect]
     Active Substance: CELECOXIB
     Indication: TRENDELENBURG^S SYMPTOM
  3. CELECOXIB. [Suspect]
     Active Substance: CELECOXIB
     Indication: FOOT DEFORMITY
  4. TIZANIDINE. [Suspect]
     Active Substance: TIZANIDINE
     Indication: IMPAIRED SELF-CARE
     Dosage: UNK
  5. CYCLOBENZAPRINE. [Suspect]
     Active Substance: CYCLOBENZAPRINE
     Indication: IMPAIRED SELF-CARE
     Dosage: UNK
  6. CELECOXIB. [Suspect]
     Active Substance: CELECOXIB
     Indication: GAIT DISTURBANCE

REACTIONS (2)
  - Ichthyosis [Recovered/Resolved]
  - Acute febrile neutrophilic dermatosis [Recovered/Resolved]
